FAERS Safety Report 21624172 (Version 2)
Quarter: 2022Q4

REPORT INFORMATION
  Report Type: Spontaneous
  Country: AU (occurrence: AU)
  Receive Date: 20221121
  Receipt Date: 20221202
  Transmission Date: 20230113
  Serious: Yes (Hospitalization)
  Sender: FDA-Public Use
  Company Number: AU-GE HEALTHCARE-2022CSU008371

PATIENT
  Age: 41 Year
  Sex: Female
  Weight: 50 kg

DRUGS (5)
  1. OMNIPAQUE [Suspect]
     Active Substance: IOHEXOL
     Indication: Computerised tomogram abdomen
     Dosage: 80 ML, SINGLE
     Route: 042
     Dates: start: 20221117, end: 20221117
  2. OMNIPAQUE [Suspect]
     Active Substance: IOHEXOL
     Indication: Computerised tomogram spine
  3. OMNIPAQUE [Suspect]
     Active Substance: IOHEXOL
     Indication: Abdominal pain upper
  4. OMNIPAQUE [Suspect]
     Active Substance: IOHEXOL
     Indication: Pancreatitis
  5. OMNIPAQUE [Suspect]
     Active Substance: IOHEXOL
     Indication: Neoplasm

REACTIONS (4)
  - Nasal discomfort [Recovered/Resolved]
  - Hypoaesthesia [Recovered/Resolved]
  - Eye swelling [Recovered/Resolved]
  - Pruritus [Recovered/Resolved]

NARRATIVE: CASE EVENT DATE: 20221117
